FAERS Safety Report 8761397 (Version 2)
Quarter: 2012Q4

REPORT INFORMATION
  Report Type: 
  Country: US (occurrence: US)
  Receive Date: 20120829
  Receipt Date: 20120906
  Transmission Date: 20130627
  Serious: Yes (Other)
  Sender: FDA-Public Use
  Company Number: US-PFIZER INC-2012207553

PATIENT
  Age: 91 Year
  Sex: Female
  Weight: 72.56 kg

DRUGS (1)
  1. LATANOPROST [Suspect]
     Dosage: 1 Gtt, daily
     Dates: start: 2012

REACTIONS (3)
  - Chronic leukaemia [Unknown]
  - Vision blurred [Unknown]
  - Asthenopia [Unknown]
